FAERS Safety Report 10723530 (Version 3)
Quarter: 2015Q1

REPORT INFORMATION
  Report Type: Spontaneous
  Country: US (occurrence: MW)
  Receive Date: 20150120
  Receipt Date: 20150129
  Transmission Date: 20150721
  Serious: Yes (Death, Hospitalization)
  Sender: FDA-Public Use
  Company Number: US-009507513-1501USA006490

PATIENT
  Sex: Female

DRUGS (2)
  1. TRUVADA [Concomitant]
     Active Substance: EMTRICITABINE\TENOFOVIR DISOPROXIL FUMARATE
     Dosage: UNK
  2. ISENTRESS [Suspect]
     Active Substance: RALTEGRAVIR POTASSIUM
     Indication: HIV INFECTION
     Dosage: 400 MG/ ONE TABLET TWICE DAILY
     Route: 048
     Dates: start: 20141008

REACTIONS (2)
  - Malaria [Unknown]
  - Blood disorder [Fatal]
